FAERS Safety Report 6079566-4 (Version None)
Quarter: 2009Q1

REPORT INFORMATION
  Report Type: 
  Country: None (occurrence: None)
  Receive Date: 20090217
  Receipt Date: 20090210
  Transmission Date: 20090719
  Serious: Yes (Other)
  Sender: FDA-Public Use
  Company Number: US-JNJFOC-20090100630

PATIENT
  Sex: Female
  Weight: 52.75 kg

DRUGS (11)
  1. FENTANYL TRANSDERMAL SYSTEM [Suspect]
     Route: 062
  2. FENTANYL TRANSDERMAL SYSTEM [Suspect]
     Route: 062
  3. FENTANYL TRANSDERMAL SYSTEM [Suspect]
     Route: 062
  4. FENTANYL TRANSDERMAL SYSTEM [Suspect]
     Route: 062
  5. FENTANYL TRANSDERMAL SYSTEM [Suspect]
     Indication: BACK PAIN
     Route: 062
  6. XYZAL [Concomitant]
     Indication: MULTIPLE ALLERGIES
     Dosage: DOSAGES : AS NEEDED
     Route: 048
  7. VALIUM [Concomitant]
     Indication: MUSCLE SPASMS
     Route: 048
  8. ATENOLOL [Concomitant]
     Indication: HYPERTENSION
     Route: 048
  9. ESTRADIOL [Concomitant]
     Indication: HORMONE REPLACEMENT THERAPY
     Route: 048
  10. LUNESTA [Concomitant]
     Indication: SLEEP DISORDER
     Route: 048
  11. SENOKOT [Concomitant]
     Indication: CONSTIPATION
     Dosage: DOSAGE : AS NEEDED
     Route: 048

REACTIONS (11)
  - ABNORMAL DREAMS [None]
  - AMNESIA [None]
  - APPLICATION SITE IRRITATION [None]
  - DECREASED APPETITE [None]
  - DRUG EFFECT DECREASED [None]
  - ERYTHEMA [None]
  - GAIT DISTURBANCE [None]
  - INCORRECT DRUG ADMINISTRATION DURATION [None]
  - PRODUCT QUALITY ISSUE [None]
  - VISION BLURRED [None]
  - WEIGHT DECREASED [None]
